FAERS Safety Report 5964766-1 (Version None)
Quarter: 2008Q4

REPORT INFORMATION
  Report Type: 
  Country: None (occurrence: None)
  Receive Date: 20081125
  Receipt Date: 20081118
  Transmission Date: 20090506
  Serious: Yes (Death, Hospitalization, Disabling, Other)
  Sender: FDA-Public Use
  Company Number: US-CELGENEUS-163-21880-08040717

PATIENT
  Sex: Male

DRUGS (2)
  1. REVLIMID [Suspect]
     Route: 048
     Dates: start: 20080403, end: 20080408
  2. ALLOPURINOL [Concomitant]
     Indication: GOUT
     Route: 065

REACTIONS (6)
  - BONE PAIN [None]
  - GOUT [None]
  - MENTAL STATUS CHANGES [None]
  - NEOPLASM PROGRESSION [None]
  - PNEUMONIA [None]
  - RENAL FAILURE [None]
